FAERS Safety Report 15823784 (Version 2)
Quarter: 2019Q1

REPORT INFORMATION
  Report Type: Spontaneous
  Country: IT (occurrence: IT)
  Receive Date: 20190114
  Receipt Date: 20190117
  Transmission Date: 20190417
  Serious: Yes (Hospitalization, Other)
  Sender: FDA-Public Use
  Company Number: IT-PFIZER INC-2019014857

PATIENT
  Age: 67 Year
  Sex: Female

DRUGS (6)
  1. TRIATEC [LOSARTAN POTASSIUM] [Concomitant]
     Dosage: UNK
  2. DIBASE [Concomitant]
     Active Substance: CHOLECALCIFEROL
  3. SIMVASTATIN. [Concomitant]
     Active Substance: SIMVASTATIN
     Dosage: 20 MG, UNK
  4. METHOTREXATE SODIUM. [Suspect]
     Active Substance: METHOTREXATE SODIUM
     Indication: RHEUMATOID ARTHRITIS
     Dosage: 7.5 MG, WEEKLY
     Route: 042
     Dates: start: 20180101, end: 20180128
  5. CARDIRENE [Concomitant]
     Active Substance: ASPIRIN DL-LYSINE
     Dosage: UNK
  6. FOLINA [FOLIC ACID] [Concomitant]

REACTIONS (5)
  - Chest pain [Unknown]
  - Respiratory failure [Unknown]
  - Respiratory tract infection [Unknown]
  - Bronchitis [Unknown]
  - Asthenia [Unknown]

NARRATIVE: CASE EVENT DATE: 20180121
